FAERS Safety Report 8135902-6 (Version None)
Quarter: 2012Q1

REPORT INFORMATION
  Report Type: 
  Country: None (occurrence: None)
  Receive Date: 20120214
  Receipt Date: 20120203
  Transmission Date: 20120608
  Serious: Yes (Hospitalization)
  Sender: FDA-Public Use
  Company Number: US-CELGENEUS-163-21880-12012638

PATIENT
  Sex: Female
  Weight: 66.4 kg

DRUGS (40)
  1. FENTANYL [Concomitant]
     Dosage: 50 MICROGRAM
     Route: 061
  2. POLYETHYLENE GLYCOL [Concomitant]
     Indication: CONSTIPATION
     Dosage: 17 GRAM
     Route: 048
  3. PROTONIX [Concomitant]
     Dosage: 40 MILLIGRAM
     Route: 048
  4. DULCOLAX [Concomitant]
     Route: 065
  5. SUPPOSITORY [Concomitant]
     Route: 065
  6. REVLIMID [Suspect]
     Indication: MULTIPLE MYELOMA
     Dosage: 15 MILLIGRAM
     Route: 048
     Dates: start: 20111108
  7. MORPHINE [Concomitant]
     Indication: PAIN
     Dosage: 2 MILLIGRAM
     Route: 041
  8. LEVOFLOXACIN [Concomitant]
     Dosage: 500 MILLIGRAM
     Route: 041
  9. ASPIRIN [Concomitant]
     Dosage: 325 MILLIGRAM
     Route: 048
  10. CEPHALEXIN [Concomitant]
     Indication: CELLULITIS
     Dosage: 1 TABLET
     Route: 048
  11. BENAZEPRIL HYDROCHLORIDE [Concomitant]
     Route: 065
  12. DOXYCYCLINE [Concomitant]
     Dosage: 100 MILLIGRAM
     Route: 065
  13. CALCIUM CARBONATE [Concomitant]
     Route: 065
  14. INSULIN LISPRO [Concomitant]
     Route: 065
  15. REVLIMID [Suspect]
     Route: 048
     Dates: start: 20120105
  16. LISINOPRIL [Concomitant]
     Indication: HYPERTENSION
     Dosage: 10 MILLIGRAM
     Route: 048
  17. OXYCODONE HCL [Concomitant]
     Indication: PAIN
     Dosage: 2 TABLET
     Route: 048
  18. COUMADIN [Concomitant]
     Indication: ARTERIAL THROMBOSIS
     Dosage: 4 MILLIGRAM
     Route: 048
  19. VANCOMYCIN [Concomitant]
     Dosage: 1000 MILLIGRAM
     Route: 041
  20. NOREPINEPHRINE BITARTRATE [Concomitant]
     Dosage: 8 MILLIGRAM
     Route: 041
  21. MAGNESIUM HYDROXIDE TAB [Concomitant]
     Route: 065
  22. MIRALAX [Concomitant]
     Route: 065
  23. LANTUS [Concomitant]
     Dosage: 10 UNITS
     Route: 058
  24. SIMVASTATIN [Concomitant]
     Dosage: 20 MILLIGRAM
     Route: 048
  25. MUCOMYST [Concomitant]
     Route: 065
  26. LEVOFLOXACIN [Concomitant]
     Dosage: 750 MILLIGRAM
     Route: 041
  27. SENOKOT [Concomitant]
     Route: 065
  28. DEXTROSE [Concomitant]
     Route: 065
  29. PERCOCET [Concomitant]
     Indication: PAIN
     Dosage: 5/325 MG
     Route: 048
  30. DEXAMETHASONE [Suspect]
     Indication: MULTIPLE MYELOMA
     Dosage: 40 MILLIGRAM
     Route: 065
     Dates: start: 20111110
  31. PLAVIX [Concomitant]
     Dosage: 75 MILLIGRAM
     Route: 048
  32. LANTUS [Concomitant]
     Dosage: 15 UNITS
     Route: 058
  33. SODIUM BICARBONATE [Concomitant]
     Indication: METABOLIC ACIDOSIS
     Dosage: 650 MILLIGRAM
     Route: 048
  34. SODIUM CHLORIDE [Concomitant]
     Dosage: 150ML/HR
     Route: 041
  35. VITAMIIN K [Concomitant]
     Route: 065
  36. VORICONAZOLE [Concomitant]
     Route: 065
  37. ZOLPIDEM [Concomitant]
     Indication: SLEEP DISORDER
     Dosage: 5 MILLIGRAM
     Route: 048
  38. LASIX [Concomitant]
     Route: 065
     Dates: start: 20110101
  39. COLACE [Concomitant]
     Route: 065
  40. GLUCAGON [Concomitant]
     Route: 065

REACTIONS (5)
  - PERIPHERAL ARTERIAL OCCLUSIVE DISEASE [None]
  - PNEUMONIA [None]
  - SEPTIC SHOCK [None]
  - RENAL FAILURE ACUTE [None]
  - PANCYTOPENIA [None]
